FAERS Safety Report 7610768-9 (Version None)
Quarter: 2011Q3

REPORT INFORMATION
  Report Type: 
  Country: None (occurrence: None)
  Receive Date: 20110715
  Receipt Date: 20110712
  Transmission Date: 20111222
  Serious: Yes (Hospitalization)
  Sender: FDA-Public Use
  Company Number: DE-SANOFI-AVENTIS-2011SA044474

PATIENT
  Age: 56 Year
  Sex: Male
  Weight: 150 kg

DRUGS (2)
  1. MEPERIDINE HCL [Suspect]
     Indication: PREMEDICATION
     Route: 042
  2. PROPOFOL [Suspect]
     Indication: PREMEDICATION
     Route: 042

REACTIONS (4)
  - DRUG INEFFECTIVE [None]
  - LOSS OF CONSCIOUSNESS [None]
  - DYSPNOEA [None]
  - PAIN [None]
